FAERS Safety Report 24698443 (Version 1)
Quarter: 2024Q4

REPORT INFORMATION
  Report Type: Report from Study
  Country: CA (occurrence: CA)
  Receive Date: 20241204
  Receipt Date: 20241204
  Transmission Date: 20250114
  Serious: Yes (Other)
  Sender: ABBVIE
  Company Number: CA-ABBVIE-5967583

PATIENT
  Age: 55 Year
  Sex: Female

DRUGS (2)
  1. RINVOQ [Suspect]
     Active Substance: UPADACITINIB
     Indication: Rheumatoid arthritis
     Dosage: FORM STRENGTH: 15 MILLIGRAM?LAST ADMIN DATE: 2024
     Route: 048
     Dates: start: 20241010
  2. RINVOQ [Suspect]
     Active Substance: UPADACITINIB
     Indication: Rheumatoid arthritis
     Route: 048

REACTIONS (9)
  - Interstitial lung disease [Unknown]
  - Cough [Unknown]
  - Headache [Not Recovered/Not Resolved]
  - Back pain [Unknown]
  - Rhinorrhoea [Unknown]
  - Abdominal pain [Unknown]
  - Dermatomyositis [Unknown]
  - Arthritis [Unknown]
  - Muscle spasms [Unknown]

NARRATIVE: CASE EVENT DATE: 20240101
